FAERS Safety Report 25348915 (Version 1)
Quarter: 2025Q2

REPORT INFORMATION
  Report Type: Spontaneous
  Country: US (occurrence: US)
  Receive Date: 20250522
  Receipt Date: 20250522
  Transmission Date: 20250716
  Serious: No
  Sender: BLUEPRINT MEDICINES
  Company Number: US-Blueprint Medicines Corporation-2025-AER-01046

PATIENT
  Age: 78 Year
  Sex: Male

DRUGS (2)
  1. AYVAKIT [Suspect]
     Active Substance: AVAPRITINIB
     Indication: Systemic mastocytosis
     Route: 065
     Dates: start: 202408
  2. AYVAKIT [Suspect]
     Active Substance: AVAPRITINIB
     Indication: Urticaria pigmentosa

REACTIONS (2)
  - Face oedema [Unknown]
  - Off label use [Unknown]
